FAERS Safety Report 6593935-5 (Version None)
Quarter: 2010Q1

REPORT INFORMATION
  Report Type: 
  Country: None (occurrence: None)
  Receive Date: 20100222
  Receipt Date: 20100210
  Transmission Date: 20100710
  Serious: Yes (Other)
  Sender: FDA-Public Use
  Company Number: US-PFIZER INC-2010018650

PATIENT
  Sex: Female

DRUGS (2)
  1. LIPITOR [Suspect]
     Indication: BLOOD CHOLESTEROL INCREASED
     Dosage: 20 MG, 1X/DAY
     Route: 048
     Dates: start: 20100204, end: 20100209
  2. BUTALBITAL/CAFFEINE/PARACETAMOL/ [Concomitant]
     Indication: HEADACHE
     Dosage: UNK

REACTIONS (1)
  - EYE SWELLING [None]
